FAERS Safety Report 15680966 (Version 1)
Quarter: 2018Q4

REPORT INFORMATION
  Report Type: Spontaneous
  Country: US (occurrence: US)
  Receive Date: 20181202
  Receipt Date: 20181202
  Transmission Date: 20190205
  Serious: No
  Sender: FDA-Public Use
  Company Number: None

PATIENT
  Age: 42 Year
  Sex: Female
  Weight: 60.75 kg

DRUGS (4)
  1. MEDERMA PM [Suspect]
     Active Substance: DIMETHICONE
     Indication: SCAR
     Dosage: ?          QUANTITY:.05 OUNCE(S);?
     Route: 061
     Dates: start: 20181125, end: 20181127
  2. VITAMIN B COMPLEX [Concomitant]
     Active Substance: CYANOCOBALAMIN\DEXPANTHENOL\NIACINAMIDE\PYRIDOXINE HYDROCHLORIDE\RIBOFLAVIN 5^-PHOSPHATE SODIUM\THIAMINE HYDROCHLORIDE\VITAMIN B COMPLEX
  3. VITAMIN D [Concomitant]
     Active Substance: CHOLECALCIFEROL
  4. IRON [Concomitant]
     Active Substance: IRON

REACTIONS (9)
  - Application site pruritus [None]
  - Application site discomfort [None]
  - Application site rash [None]
  - Application site irritation [None]
  - Skin ulcer [None]
  - Product complaint [None]
  - Blister [None]
  - Drug ineffective [None]
  - Application site erythema [None]

NARRATIVE: CASE EVENT DATE: 20181125
